FAERS Safety Report 7991605-X (Version None)
Quarter: 2011Q4

REPORT INFORMATION
  Report Type: 
  Country: None (occurrence: None)
  Receive Date: 20111219
  Receipt Date: 20111020
  Transmission Date: 20120403
  Serious: No
  Sender: FDA-Public Use
  Company Number: US-ALLERGAN-1113865US

PATIENT
  Sex: Male

DRUGS (2)
  1. LUMIGAN [Suspect]
     Indication: INTRAOCULAR PRESSURE TEST
     Dosage: 2 GTT, QPM
     Route: 047
     Dates: start: 20110801
  2. RESTASIS [Concomitant]
     Indication: DRY EYE
     Dosage: UNK

REACTIONS (1)
  - VISION BLURRED [None]
